FAERS Safety Report 7378893-8 (Version None)
Quarter: 2011Q1

REPORT INFORMATION
  Report Type: 
  Country: None (occurrence: None)
  Receive Date: 20110328
  Receipt Date: 20110323
  Transmission Date: 20110831
  Serious: Yes (Life-Threatening, Hospitalization)
  Sender: FDA-Public Use
  Company Number: PHHO2011DE05362

PATIENT
  Sex: Female
  Weight: 86 kg

DRUGS (3)
  1. INTERFERON ALFA [Concomitant]
  2. GLEEVEC [Suspect]
     Dosage: 600 MG, UNK
     Route: 048
  3. ARA-C [Concomitant]

REACTIONS (6)
  - PAPILLOEDEMA [None]
  - SUBDURAL HYGROMA [None]
  - CRANIOTOMY [None]
  - GAIT DISTURBANCE [None]
  - HEADACHE [None]
  - INTRACRANIAL PRESSURE INCREASED [None]
